FAERS Safety Report 22219982 (Version 1)
Quarter: 2023Q2

REPORT INFORMATION
  Report Type: Spontaneous
  Country: US (occurrence: None)
  Receive Date: 20230414
  Receipt Date: 20230414
  Transmission Date: 20230722
  Serious: Yes (Life-Threatening, Hospitalization)
  Sender: FDA-Public Use
  Company Number: None

PATIENT
  Sex: Male

DRUGS (1)
  1. ZIPRASIDONE [Suspect]
     Active Substance: ZIPRASIDONE
     Indication: Schizophrenia
     Route: 048
     Dates: start: 20230123, end: 20230227

REACTIONS (4)
  - Therapy change [None]
  - Drug interaction [None]
  - Priapism [None]
  - Contraindicated product administered [None]

NARRATIVE: CASE EVENT DATE: 20230220
